FAERS Safety Report 22975948 (Version 5)
Quarter: 2023Q4

REPORT INFORMATION
  Report Type: Spontaneous
  Country: CA (occurrence: CA)
  Receive Date: 20230925
  Receipt Date: 20231109
  Transmission Date: 20240109
  Serious: Yes (Other)
  Sender: FDA-Public Use
  Company Number: CA-CELLTRION INC.-2023CA018443

PATIENT

DRUGS (6)
  1. INFLECTRA [Suspect]
     Active Substance: INFLIXIMAB-DYYB
     Indication: Colitis ulcerative
     Dosage: 1 DF, WEEK 0 RECEIVED IN HOSPITAL
     Route: 042
     Dates: start: 20230413, end: 20230413
  2. INFLECTRA [Suspect]
     Active Substance: INFLIXIMAB-DYYB
     Dosage: 362 MG, Q 2,6 WEEKS, THEN EVERY 8 WEEKS
     Route: 042
     Dates: start: 20230426, end: 20230915
  3. INFLECTRA [Suspect]
     Active Substance: INFLIXIMAB-DYYB
     Dosage: 362 MG, Q 2,6 WEEKS, THEN EVERY 8 WEEKS
     Route: 042
     Dates: start: 20230721
  4. INFLECTRA [Suspect]
     Active Substance: INFLIXIMAB-DYYB
     Dosage: 362 MG, AFTER 8 WEEKS
     Route: 042
     Dates: start: 20230915
  5. INFLECTRA [Suspect]
     Active Substance: INFLIXIMAB-DYYB
     Dosage: 5 MG/KG  AFTER 3 WEEKS AND 4 DAYS (RESCUE DOSE)
     Route: 042
     Dates: start: 20231010, end: 20231010
  6. PREDNISONE [Concomitant]
     Active Substance: PREDNISONE
     Dosage: 1 DF, TAPERING DOSE
     Route: 042
     Dates: start: 202210

REACTIONS (4)
  - Condition aggravated [Recovered/Resolved]
  - Drug ineffective [Unknown]
  - Off label use [Unknown]
  - Off label use [Unknown]

NARRATIVE: CASE EVENT DATE: 20230101
